FAERS Safety Report 9780175 (Version 1)
Quarter: 2013Q4

REPORT INFORMATION
  Report Type: Report from Study
  Country: AU (occurrence: AU)
  Receive Date: 20131223
  Receipt Date: 20131223
  Transmission Date: 20140711
  Serious: Yes (Other)
  Sender: FDA-Public Use
  Company Number: PHHY2013AU148867

PATIENT
  Sex: Male

DRUGS (2)
  1. ACLASTA [Suspect]
     Dosage: 5 MG, UNK
     Route: 042
     Dates: start: 20121207
  2. ACLASTA [Suspect]
     Dosage: UNK
     Route: 042
     Dates: start: 2013

REACTIONS (3)
  - Cervical vertebral fracture [Not Recovered/Not Resolved]
  - Compression fracture [Recovering/Resolving]
  - Back pain [Recovering/Resolving]
